FAERS Safety Report 5562708-4 (Version None)
Quarter: 2007Q4

REPORT INFORMATION
  Report Type: 
  Country: None (occurrence: None)
  Receive Date: 20071217
  Receipt Date: 20071204
  Transmission Date: 20080405
  Serious: Yes (Hospitalization)
  Sender: FDA-Public Use
  Company Number: DE-KINGPHARMUSA00001-K200701570

PATIENT

DRUGS (5)
  1. SEPTRA [Suspect]
     Indication: CYSTITIS
     Dosage: 960 MG X 3 DOSES
     Dates: start: 20060101, end: 20060101
  2. RISPERIDONE [Suspect]
     Indication: DEPRESSIVE DELUSION
     Dosage: 2 MG DAILY
     Dates: start: 20060701, end: 20060101
  3. CITALOPRAM [Suspect]
     Indication: DEPRESSIVE DELUSION
     Dosage: 20 MG DAILY
     Dates: start: 20060701, end: 20060101
  4. RAMIPRIL [Concomitant]
  5. NIFEDIPINE [Concomitant]

REACTIONS (1)
  - ELECTROCARDIOGRAM QT PROLONGED [None]
